FAERS Safety Report 8243699-4 (Version None)
Quarter: 2012Q1

REPORT INFORMATION
  Report Type: 
  Country: None (occurrence: None)
  Receive Date: 20120329
  Receipt Date: 20110201
  Transmission Date: 20120608
  Serious: No
  Sender: FDA-Public Use
  Company Number: US-MYLANLABS-2011S1002199

PATIENT
  Age: 67 Year
  Sex: Female

DRUGS (3)
  1. EMSAM [Suspect]
     Indication: DEPRESSION
     Dosage: CHANGED Q24H
     Route: 062
     Dates: start: 20090101
  2. XANAX [Concomitant]
     Indication: ANXIETY
  3. OMEPRAZOLE [Concomitant]
     Dosage: 1-2 CAPSULES DAILY

REACTIONS (3)
  - DRUG INEFFECTIVE [None]
  - DEPRESSION [None]
  - ANXIETY [None]
